FAERS Safety Report 7604014-X (Version None)
Quarter: 2011Q3

REPORT INFORMATION
  Report Type: 
  Country: None (occurrence: None)
  Receive Date: 20110712
  Receipt Date: 20110707
  Transmission Date: 20111222
  Serious: Yes (Hospitalization)
  Sender: FDA-Public Use
  Company Number: BE-ROCHE-787917

PATIENT
  Sex: Male
  Weight: 99 kg

DRUGS (9)
  1. BEVACIZUMAB [Suspect]
     Route: 042
     Dates: start: 20101209, end: 20110524
  2. CAPECITABINE [Suspect]
     Dosage: FREQENCY:DAY 1 TO DAY 14.
     Route: 048
     Dates: start: 20101209, end: 20110607
  3. D-CURE [Concomitant]
     Dosage: D-CURE (1 AMP)/SEM;
     Dates: start: 20110119
  4. DEPAKENE [Concomitant]
     Dosage: REPORTED CHROMO 500, STRTED BEFORE 2005.
  5. OXALIPLATIN [Suspect]
     Dosage: FREQUENCY:3 WEEKS REGIMEN.
     Route: 042
     Dates: start: 20101209, end: 20110524
  6. ISOTEN [Concomitant]
     Dosage: REPORTED DRUG :ISOTEN 2.5
     Dates: start: 20110615
  7. LORAZEPAM [Concomitant]
     Dates: start: 20110303
  8. ENOXAPARIN SODIUM [Concomitant]
     Dosage: DRUG NAME REPORTED AS :CLEXANE 40.
     Route: 058
     Dates: start: 20110613, end: 20110617
  9. FRAXIPARIN 0.3 [Concomitant]
     Dates: start: 20110615, end: 20110707

REACTIONS (1)
  - CONFUSIONAL STATE [None]
